FAERS Safety Report 25302606 (Version 1)
Quarter: 2025Q2

REPORT INFORMATION
  Report Type: Report from Study
  Country: AT (occurrence: AT)
  Receive Date: 20250512
  Receipt Date: 20250512
  Transmission Date: 20250717
  Serious: Yes (Other)
  Sender: PFIZER
  Company Number: AT-ROCHE-10000270279

PATIENT
  Age: 47 Year

DRUGS (2)
  1. TRASTUZUMAB [Suspect]
     Active Substance: TRASTUZUMAB
     Indication: Breast cancer
     Route: 065
  2. PERTUZUMAB [Suspect]
     Active Substance: PERTUZUMAB
     Indication: Breast cancer
     Route: 065

REACTIONS (6)
  - Neutropenia [Unknown]
  - Leukopenia [Unknown]
  - Polyneuropathy [Unknown]
  - Infection [Unknown]
  - Aphthous ulcer [Unknown]
  - Palpitations [Unknown]

NARRATIVE: CASE EVENT DATE: 20250109
